FAERS Safety Report 8490993-8 (Version None)
Quarter: 2012Q3

REPORT INFORMATION
  Report Type: 
  Country: None (occurrence: None)
  Receive Date: 20120706
  Receipt Date: 20120625
  Transmission Date: 20120928
  Serious: Yes (Other)
  Sender: FDA-Public Use
  Company Number: JP-ELI_LILLY_AND_COMPANY-JP201206001104

PATIENT
  Age: 65 Year
  Sex: Female

DRUGS (5)
  1. CISPLATIN [Concomitant]
     Dosage: 40 MG, OTHER
     Route: 042
     Dates: start: 20111001
  2. CISPLATIN [Concomitant]
     Indication: PANCREATIC CARCINOMA
     Dosage: 10 MG, OTHER
     Route: 042
     Dates: start: 20110601, end: 20111001
  3. GEMZAR [Suspect]
     Indication: PANCREATIC CARCINOMA
     Dosage: 400 MG, OTHER
     Route: 042
     Dates: start: 20110601, end: 20111001
  4. GEMZAR [Suspect]
     Dosage: 600 MG, OTHER
     Route: 042
     Dates: start: 20111001
  5. TS 1 [Concomitant]
     Indication: PANCREATIC CARCINOMA
     Dosage: 20 MG, OTHER
     Route: 048
     Dates: start: 20110601, end: 20111001

REACTIONS (2)
  - ASCITES [None]
  - OEDEMA [None]
